FAERS Safety Report 23323088 (Version 1)
Quarter: 2023Q4

REPORT INFORMATION
  Report Type: Spontaneous
  Country: US (occurrence: None)
  Receive Date: 20231220
  Receipt Date: 20231220
  Transmission Date: 20240109
  Serious: No
  Sender: FDA-Public Use
  Company Number: US-ROCHE-3262771

PATIENT
  Sex: Female

DRUGS (1)
  1. RITUXAN [Suspect]
     Active Substance: RITUXIMAB
     Indication: Polymyositis
     Dosage: FORM STRENGTH: 10 MG/ML
     Route: 041
     Dates: start: 202208

REACTIONS (4)
  - Off label use [Unknown]
  - Fatigue [Unknown]
  - Pain [Unknown]
  - Malaise [Unknown]
